FAERS Safety Report 14083469 (Version 3)
Quarter: 2018Q4

REPORT INFORMATION
  Report Type: Spontaneous
  Country: US (occurrence: US)
  Receive Date: 20171013
  Receipt Date: 20181127
  Transmission Date: 20190204
  Serious: No
  Sender: FDA-Public Use
  Company Number: US-PFIZER INC-2017307200

PATIENT
  Age: 57 Year
  Sex: Female

DRUGS (5)
  1. DOCETAXEL. [Suspect]
     Active Substance: DOCETAXEL
     Indication: BREAST CANCER
     Dosage: 80 MG/8 ML, CYCLIC (SIX CYCLES) EVERY THREE WEEKS
     Route: 042
     Dates: start: 20140805, end: 20141118
  2. DOCETAXEL. [Suspect]
     Active Substance: DOCETAXEL
     Dosage: UNK
     Dates: start: 20140805, end: 20141118
  3. XANAX [Concomitant]
     Active Substance: ALPRAZOLAM
  4. PARAPLATIN [Concomitant]
     Active Substance: CARBOPLATIN
  5. LIVALO [Concomitant]
     Active Substance: PITAVASTATIN CALCIUM

REACTIONS (2)
  - Madarosis [Not Recovered/Not Resolved]
  - Alopecia [Not Recovered/Not Resolved]

NARRATIVE: CASE EVENT DATE: 20140812
